FAERS Safety Report 5766003-X (Version None)
Quarter: 2008Q2

REPORT INFORMATION
  Report Type: 
  Country: None (occurrence: None)
  Receive Date: 20080606
  Receipt Date: 20080529
  Transmission Date: 20081010
  Serious: Yes (Hospitalization, Other)
  Sender: FDA-Public Use
  Company Number: 028063

PATIENT
  Age: 49 Year
  Sex: Male
  Weight: 120 kg

DRUGS (6)
  1. WARFARIN SODIUM [Suspect]
     Indication: DEEP VEIN THROMBOSIS
     Dosage: 1 TABLET, QD, ORAL
     Route: 048
     Dates: start: 20080115, end: 20080130
  2. WARFARIN SODIUM [Suspect]
     Indication: PULMONARY EMBOLISM
     Dosage: 1 TABLET, QD, ORAL
     Route: 048
     Dates: start: 20080115, end: 20080130
  3. LOVENOX [Suspect]
     Indication: DEEP VEIN THROMBOSIS
     Dates: start: 20080111, end: 20080120
  4. LOVENOX [Suspect]
     Indication: PULMONARY EMBOLISM
     Dates: start: 20080111, end: 20080120
  5. LOVENOX [Suspect]
     Indication: DEEP VEIN THROMBOSIS
     Dates: start: 20080208
  6. LOVENOX [Suspect]
     Indication: PULMONARY EMBOLISM
     Dates: start: 20080208

REACTIONS (7)
  - ALANINE AMINOTRANSFERASE INCREASED [None]
  - ASPARTATE AMINOTRANSFERASE INCREASED [None]
  - COAGULATION FACTOR INCREASED [None]
  - HAEMATOMA [None]
  - HAEMORRHAGE [None]
  - HYPERCOAGULATION [None]
  - LIVER FUNCTION TEST ABNORMAL [None]
